FAERS Safety Report 15196101 (Version 1)
Quarter: 2018Q3

REPORT INFORMATION
  Report Type: Other
  Country: US (occurrence: US)
  Receive Date: 20180725
  Receipt Date: 20180725
  Transmission Date: 20181010
  Serious: No
  Sender: FDA-Public Use
  Company Number: US-EPIC PHARMA LLC-2018EPC00167

PATIENT

DRUGS (1)
  1. DEXTROAMPHET SACCHARAT, AMPHET ASPARTATE, DEXTROAMPHET SULFATE AND AMPHET SULFAT [Suspect]
     Active Substance: AMPHETAMINE ASPARTATE\AMPHETAMINE SULFATE\DEXTROAMPHETAMINE SACCHARATE\DEXTROAMPHETAMINE SULFATE

REACTIONS (13)
  - Pyrexia [Unknown]
  - Swelling [Unknown]
  - Liver disorder [Unknown]
  - Flushing [Unknown]
  - Nausea [Unknown]
  - Renal disorder [Unknown]
  - Gastrointestinal disorder [Unknown]
  - Constipation [Unknown]
  - Feeling abnormal [Unknown]
  - Headache [Unknown]
  - Abdominal distension [Unknown]
  - Visual impairment [Unknown]
  - Abdominal pain [Unknown]
